FAERS Safety Report 6356381-5 (Version None)
Quarter: 2009Q3

REPORT INFORMATION
  Report Type: 
  Country: None (occurrence: None)
  Receive Date: 20090915
  Receipt Date: 20090904
  Transmission Date: 20100115
  Serious: No
  Sender: FDA-Public Use
  Company Number: JP-ELI_LILLY_AND_COMPANY-JP200908005523

PATIENT
  Age: 11 Year
  Sex: Male
  Weight: 38.6 kg

DRUGS (5)
  1. STRATTERA [Suspect]
     Indication: ATTENTION DEFICIT/HYPERACTIVITY DISORDER
     Dosage: 15 MG, DAILY (1/D)
     Route: 048
     Dates: start: 20090630, end: 20090706
  2. STRATTERA [Suspect]
     Dosage: 30 MG, DAILY (1/D)
     Route: 048
     Dates: start: 20090707, end: 20090710
  3. LINTON [Concomitant]
     Indication: TIC
     Dosage: 6 MG, DAILY (1/D)
     Route: 048
     Dates: start: 20090406
  4. WINTERMIN [Concomitant]
     Indication: AGITATION
     Dosage: 50 MG, DAILY (1/D)
     Route: 048
     Dates: start: 20090427, end: 20090809
  5. AKINETON [Concomitant]
     Indication: PROPHYLAXIS
     Dosage: 2 MG, DAILY (1/D)
     Route: 048
     Dates: start: 20090525

REACTIONS (2)
  - AGITATION [None]
  - ANGER [None]
